FAERS Safety Report 15993529 (Version 5)
Quarter: 2020Q2

REPORT INFORMATION
  Report Type: Report from Study
  Country: DE (occurrence: DE)
  Receive Date: 20190222
  Receipt Date: 20200428
  Transmission Date: 20200713
  Serious: Yes (Hospitalization)
  Sender: FDA-Public Use
  Company Number: DE-TEVA-2018-DE-892947

PATIENT
  Age: 78 Year
  Sex: Female
  Weight: 63 kg

DRUGS (10)
  1. DEXAMETHASONE. [Suspect]
     Active Substance: DEXAMETHASONE
     Indication: PLASMA CELL MYELOMA
     Dosage: 20 MG
     Route: 065
     Dates: start: 20150720, end: 20150810
  2. POMALIDOMIDE [Suspect]
     Active Substance: POMALIDOMIDE
     Indication: PLASMA CELL MYELOMA
     Route: 048
     Dates: start: 20141222, end: 20141228
  3. POMALIDOMIDE [Suspect]
     Active Substance: POMALIDOMIDE
     Dosage: 4 MG
     Route: 048
     Dates: start: 20141229, end: 20150705
  4. POMALIDOMIDE [Suspect]
     Active Substance: POMALIDOMIDE
     Dosage: 4 MG
     Route: 048
     Dates: start: 20141124, end: 20141214
  5. CIPROFLOXACIN. [Concomitant]
     Active Substance: CIPROFLOXACIN
     Indication: NASOPHARYNGITIS
     Dosage: 1000 MILLIGRAM
     Route: 048
     Dates: start: 201504, end: 20150427
  6. FOSFURO [Concomitant]
     Indication: URINARY TRACT INFECTION
     Dosage: 3000 MG
     Route: 048
     Dates: start: 20150409, end: 2015
  7. PAMIDRONATE [Concomitant]
     Active Substance: PAMIDRONATE DISODIUM
     Indication: PLASMA CELL MYELOMA
     Dosage: 3 MILLIGRAM
     Route: 041
     Dates: start: 20090122, end: 20170704
  8. DEXAMETHASONE. [Suspect]
     Active Substance: DEXAMETHASONE
     Dosage: 20 MG
     Route: 065
     Dates: start: 20141124, end: 20150706
  9. POMALIDOMIDE [Suspect]
     Active Substance: POMALIDOMIDE
     Dosage: 4 MG
     Route: 048
     Dates: start: 20150720, end: 20150809
  10. OCTAGAM IMMUNE GLOBULIN (HUMAN) [Concomitant]
     Active Substance: HUMAN IMMUNOGLOBULIN G
     Indication: ANTIBODY TEST ABNORMAL
     Dosage: .3333 GRAM
     Route: 041
     Dates: start: 20150824, end: 20160218

REACTIONS (4)
  - Anaemia [Not Recovered/Not Resolved]
  - Pneumonia [Recovered/Resolved]
  - Dyspnoea [Recovered/Resolved]
  - Renal failure [Recovered/Resolved]

NARRATIVE: CASE EVENT DATE: 20150713
